FAERS Safety Report 8170975-6 (Version None)
Quarter: 2012Q1

REPORT INFORMATION
  Report Type: 
  Country: None (occurrence: None)
  Receive Date: 20120228
  Receipt Date: 20120222
  Transmission Date: 20120608
  Serious: Yes (Other)
  Sender: FDA-Public Use
  Company Number: US-PFIZER INC-2012048441

PATIENT
  Sex: Female

DRUGS (2)
  1. NEURONTIN [Suspect]
     Dosage: 100 MG, 1X/DAY
  2. TRAMADOL [Concomitant]
     Dosage: UNK

REACTIONS (3)
  - BACK INJURY [None]
  - BACK PAIN [None]
  - PAIN IN EXTREMITY [None]
